FAERS Safety Report 6230946-3 (Version None)
Quarter: 2009Q2

REPORT INFORMATION
  Report Type: 
  Country: None (occurrence: None)
  Receive Date: 20090616
  Receipt Date: 20081127
  Transmission Date: 20091009
  Serious: Yes (Death)
  Sender: FDA-Public Use
  Company Number: MX-NOVOPROD-275014

PATIENT
  Age: 41 Year
  Sex: Male
  Weight: 75 kg

DRUGS (1)
  1. LEVEMIR [Suspect]
     Indication: DIABETES MELLITUS
     Dosage: 71 IU, QD
     Route: 058
     Dates: start: 20071205

REACTIONS (1)
  - SUDDEN DEATH [None]
